FAERS Safety Report 9093188 (Version 2)
Quarter: 2013Q1

REPORT INFORMATION
  Report Type: Spontaneous
  Country: FI (occurrence: FI)
  Receive Date: 20130201
  Receipt Date: 20130320
  Transmission Date: 20140127
  Serious: Yes (Hospitalization)
  Sender: FDA-Public Use
  Company Number: FI-ROCHE-1186201

PATIENT
  Age: 31 Year
  Sex: Male

DRUGS (4)
  1. MABTHERA [Suspect]
     Indication: GRANULOMATOSIS WITH POLYANGIITIS
     Route: 042
     Dates: start: 20130114
  2. MABTHERA [Suspect]
     Indication: OFF LABEL USE
     Dosage: RESTARED, SECOND INFUSION
     Route: 042
  3. PREDNISOLON [Concomitant]
     Route: 065
  4. MYCOPHENOLATE MOFETIL [Concomitant]
     Route: 065

REACTIONS (1)
  - Intracranial venous sinus thrombosis [Recovered/Resolved]
